FAERS Safety Report 22017857 (Version 2)
Quarter: 2023Q1

REPORT INFORMATION
  Report Type: Report from Study
  Country: JP (occurrence: JP)
  Receive Date: 20230221
  Receipt Date: 20230324
  Transmission Date: 20230417
  Serious: Yes (Hospitalization)
  Sender: FDA-Public Use
  Company Number: JP-REGENERON PHARMACEUTICALS, INC.-2023-025895

PATIENT
  Age: 66 Year
  Sex: Female

DRUGS (22)
  1. CEMIPLIMAB [Suspect]
     Active Substance: CEMIPLIMAB
     Indication: Lung adenocarcinoma stage IV
     Dosage: 350 MG, Q3W
     Route: 042
     Dates: start: 20220225, end: 20221213
  2. PEMETREXED [Suspect]
     Active Substance: PEMETREXED
     Indication: Lung adenocarcinoma stage IV
     Dosage: 500 MG/M2, Q3W
     Route: 042
     Dates: start: 20220225, end: 20221213
  3. CARBOPLATIN [Suspect]
     Active Substance: CARBOPLATIN
     Indication: Lung adenocarcinoma stage IV
     Dosage: AUC OF 5 OR 6 MG/ML/MINUTE, Q3W
     Route: 042
     Dates: start: 20220225, end: 20220426
  4. OMARIGLIPTIN [Concomitant]
     Active Substance: OMARIGLIPTIN
     Indication: Type 2 diabetes mellitus
     Dosage: 25 MG, WEEKLY
     Route: 048
  5. BEPOTASTINE BESYLATE [Concomitant]
     Active Substance: BEPOTASTINE BESYLATE
     Indication: Eczema
     Dosage: 20 MG, BID
     Route: 048
     Dates: end: 20230206
  6. MAGNESIUM OXIDE [Concomitant]
     Active Substance: MAGNESIUM OXIDE
     Indication: Constipation
     Dosage: 1320 MG, BID
     Route: 048
     Dates: end: 20230210
  7. GOKOTO [Concomitant]
     Indication: Cough
     Dosage: 9 {DF}, TID
     Route: 048
     Dates: end: 20230206
  8. SANSONINTO [Concomitant]
     Indication: Insomnia
     Dosage: 5 G, AS NECESSARY
     Route: 048
     Dates: end: 20230206
  9. OMIDENEPAG ISOPROPYL [Concomitant]
     Active Substance: OMIDENEPAG ISOPROPYL
     Indication: Glaucoma
     Dosage: 1 DROP
     Route: 061
  10. SODIUM GUALENATE MONOHYDRATE [Concomitant]
     Active Substance: SODIUM GUALENATE MONOHYDRATE
     Indication: Infection prophylaxis
     Dosage: 5 MG, PRN, GARGLE
     Dates: end: 20230206
  11. AMLODIPINE [Concomitant]
     Active Substance: AMLODIPINE BESYLATE
     Indication: Hypertension
     Dosage: 5 MG, QD
     Route: 048
     Dates: start: 20220227
  12. DENOSUMAB [Concomitant]
     Active Substance: DENOSUMAB
     Indication: Metastasis
     Dosage: 120 MG, Q4W
     Route: 058
     Dates: start: 20220303
  13. CALCIUM CARBONATE\CHOLECALCIFEROL\MAGNESIUM CARBONATE [Concomitant]
     Active Substance: CALCIUM CARBONATE\CHOLECALCIFEROL\MAGNESIUM CARBONATE
     Indication: Hypocalcaemia
     Dosage: 2 {DF}, QD
     Route: 048
     Dates: start: 20220303
  14. HERBALS [Concomitant]
     Active Substance: HERBALS
     Indication: Anaemia
     Dosage: 7.5 G, TID
     Route: 048
     Dates: start: 20220507
  15. ZINC [Concomitant]
     Active Substance: ZINC
     Indication: Zinc deficiency
     Dosage: 50 MG, QD
     Route: 048
     Dates: start: 20220607
  16. REBAMIPIDE [Concomitant]
     Active Substance: REBAMIPIDE
     Indication: Gastritis prophylaxis
     Dosage: 100 MG, QD
     Route: 048
     Dates: start: 20220607, end: 20230212
  17. BIO-THREE [Concomitant]
     Active Substance: HERBALS
     Indication: Constipation
     Dosage: 6 {DF}, BID
     Route: 048
     Dates: start: 20220408
  18. ONEALFA [Concomitant]
     Active Substance: ALFACALCIDOL
     Indication: Osteoporosis
     Dosage: 0.5 UG, QD
     Route: 048
     Dates: start: 20220408
  19. BASEN 1 [Concomitant]
     Indication: Type 2 diabetes mellitus
     Dosage: 0.3 MG, AS NECESSARY
     Route: 048
     Dates: start: 20220608
  20. MIROGABALIN BESYLATE [Concomitant]
     Active Substance: MIROGABALIN BESYLATE
     Indication: Neuropathy peripheral
     Dosage: 10 MG, BID
     Route: 048
     Dates: start: 20220719
  21. DEXAMETHASONE [Concomitant]
     Active Substance: DEXAMETHASONE
     Indication: Stomatitis
     Dosage: 1 TSP, PRN
     Route: 061
     Dates: start: 20220722
  22. LIPITOR [Concomitant]
     Active Substance: ATORVASTATIN CALCIUM
     Indication: Hyperlipidaemia
     Dosage: 10 MG, QD
     Route: 048

REACTIONS (1)
  - Tubulointerstitial nephritis [Recovering/Resolving]

NARRATIVE: CASE EVENT DATE: 20230207
